FAERS Safety Report 10388978 (Version 1)
Quarter: 2014Q1

REPORT INFORMATION
  Report Type: Spontaneous
  Country: US (occurrence: None)
  Receive Date: 20140306
  Receipt Date: 20140306
  Transmission Date: 20141002
  Serious: Yes (Hospitalization)
  Sender: FDA-Public Use
  Company Number: 163-21880-13032326

PATIENT
  Age: 73 Year
  Sex: Male

DRUGS (2)
  1. REVLIMID [Suspect]
     Indication: PLASMA CELL MYELOMA
     Route: 048
     Dates: start: 201004, end: 2010
  2. BLOOD PRESSURE MEDICATION (ALL OTHER THERAPEUTIC PRODUCTS) (UNKNOWN) [Concomitant]

REACTIONS (1)
  - Upper respiratory tract infection [None]
